FAERS Safety Report 4832278-4 (Version None)
Quarter: 2005Q4

REPORT INFORMATION
  Report Type: 
  Country: None (occurrence: None)
  Receive Date: 20051121
  Receipt Date: 20050416
  Transmission Date: 20060501
  Serious: Yes (Disabling)
  Sender: FDA-Public Use
  Company Number: JP-SP-2005-00774

PATIENT
  Age: 49 Year
  Sex: Male

DRUGS (3)
  1. IMMUCYST [Suspect]
     Indication: BLADDER CANCER
     Route: 043
     Dates: start: 20050226, end: 20050326
  2. CARBAZOCHROME SODIUM SULFONATE [Concomitant]
     Dates: start: 20050220, end: 20050326
  3. TRANEXAMIC ACID [Concomitant]
     Dates: start: 20050320, end: 20050326

REACTIONS (6)
  - ARTHRITIS [None]
  - CONJUNCTIVITIS [None]
  - HEPATIC FUNCTION ABNORMAL [None]
  - MYALGIA [None]
  - PYREXIA [None]
  - REITER'S SYNDROME [None]
